FAERS Safety Report 16948609 (Version 2)
Quarter: 2021Q4

REPORT INFORMATION
  Report Type: Spontaneous
  Country: CA (occurrence: CA)
  Receive Date: 20191023
  Receipt Date: 20211108
  Transmission Date: 20220303
  Serious: Yes (Other)
  Sender: FDA-Public Use
  Company Number: CA-AUROBINDO-AUR-APL-2019-068373

PATIENT
  Age: 28 Year
  Sex: Female

DRUGS (1)
  1. AMOXICILLIN [Suspect]
     Active Substance: AMOXICILLIN
     Indication: Pharyngitis streptococcal
     Dosage: 500 MILLIGRAM, 3 TIMES A DAY
     Route: 048

REACTIONS (5)
  - Thrombosis [Unknown]
  - Heavy menstrual bleeding [Unknown]
  - Menstruation irregular [Unknown]
  - Muscle spasms [Unknown]
  - Vaginal haemorrhage [Unknown]
